FAERS Safety Report 17217141 (Version 1)
Quarter: 2019Q4

REPORT INFORMATION
  Report Type: Spontaneous
  Country: US (occurrence: US)
  Receive Date: 20191231
  Receipt Date: 20191231
  Transmission Date: 20200122
  Serious: No
  Sender: FDA-Public Use
  Company Number: US-TEVA-2019-US-1158342

PATIENT
  Sex: Female

DRUGS (1)
  1. AJOVY [Suspect]
     Active Substance: FREMANEZUMAB-VFRM
     Route: 065

REACTIONS (6)
  - Pruritus [Unknown]
  - Product storage error [Unknown]
  - Product dispensing error [Unknown]
  - Influenza like illness [Unknown]
  - Product communication issue [Unknown]
  - Diarrhoea [Unknown]
